FAERS Safety Report 5637860-2 (Version None)
Quarter: 2008Q1

REPORT INFORMATION
  Report Type: 
  Country: None (occurrence: None)
  Receive Date: 20080131
  Receipt Date: 20071105
  Transmission Date: 20080703
  Serious: No
  Sender: FDA-Public Use
  Company Number: 163-21880-07110263

PATIENT
  Age: 72 Year
  Sex: Female

DRUGS (2)
  1. REVLIMID [Suspect]
     Indication: MULTIPLE MYELOMA
     Dosage: 10 MG, 1 IN 1 D, ORAL ; 15 MG, 1 IN 1 D, ORAL
     Route: 048
     Dates: start: 20061101, end: 20070301
  2. REVLIMID [Suspect]
     Indication: MULTIPLE MYELOMA
     Dosage: 10 MG, 1 IN 1 D, ORAL ; 15 MG, 1 IN 1 D, ORAL
     Route: 048
     Dates: start: 20070319, end: 20070401

REACTIONS (2)
  - HYPERSPLENISM [None]
  - THROMBOCYTHAEMIA [None]
